FAERS Safety Report 19513837 (Version 1)
Quarter: 2021Q3

REPORT INFORMATION
  Report Type: Spontaneous
  Country: US (occurrence: US)
  Receive Date: 20210709
  Receipt Date: 20210709
  Transmission Date: 20211014
  Serious: No
  Sender: FDA-Public Use
  Company Number: US-AVEO ONCOLOGY-2021-AVEO-US003336

PATIENT

DRUGS (1)
  1. FOTIVDA [Suspect]
     Active Substance: TIVOZANIB HYDROCHLORIDE
     Indication: RENAL CANCER
     Dosage: 0.89 MG, DAILY

REACTIONS (2)
  - Weight decreased [Unknown]
  - Decreased appetite [Unknown]
